FAERS Safety Report 19779110 (Version 1)
Quarter: 2021Q3

REPORT INFORMATION
  Report Type: Other
  Country: CA (occurrence: CA)
  Receive Date: 20210902
  Receipt Date: 20210902
  Transmission Date: 20211014
  Serious: Yes (Other)
  Sender: FDA-Public Use
  Company Number: CA-APOTEX-2021AP039900

PATIENT
  Age: 17 Year
  Sex: Female
  Weight: 48 kg

DRUGS (2)
  1. ACETAMINOPHEN. [Suspect]
     Active Substance: ACETAMINOPHEN
     Indication: PRODUCT USED FOR UNKNOWN INDICATION
     Dosage: 238.1 MILLIGRAM/KILOGRAM
     Route: 065
  2. ACETAMINOPHEN. [Suspect]
     Active Substance: ACETAMINOPHEN
     Dosage: 11.5 GRAM
     Route: 048

REACTIONS (3)
  - Overdose [Unknown]
  - Vomiting [Unknown]
  - Nausea [Unknown]
